FAERS Safety Report 15822402 (Version 2)
Quarter: 2019Q1

REPORT INFORMATION
  Report Type: Spontaneous
  Country: NL (occurrence: NL)
  Receive Date: 20190114
  Receipt Date: 20190128
  Transmission Date: 20190417
  Serious: Yes (Death, Life-Threatening, Hospitalization, Other)
  Sender: FDA-Public Use
  Company Number: NL-JUBILANT CADISTA PHARMACEUTICALS-2019JUB00001

PATIENT
  Age: 35 Year
  Sex: Female

DRUGS (5)
  1. XEPLION [Suspect]
     Active Substance: PALIPERIDONE PALMITATE
     Indication: BIPOLAR DISORDER
     Dosage: 100 MG, 1X/MONTH (^PER 4 WEEKS^)
     Route: 065
  2. RISPERDAL CONSLA [Concomitant]
     Indication: BIPOLAR DISORDER
     Dosage: 50 MG PER TWO WEEKS
     Route: 065
  3. LAMOTRIGINE. [Suspect]
     Active Substance: LAMOTRIGINE
     Indication: BIPOLAR DISORDER
     Dosage: 25 MG, 2X/DAY
     Route: 065
  4. XEPLION [Suspect]
     Active Substance: PALIPERIDONE PALMITATE
     Indication: DEPRESSION
  5. LAMOTRIGINE. [Suspect]
     Active Substance: LAMOTRIGINE
     Indication: DEPRESSION
     Dosage: 50 MG, 2X/DAY
     Route: 065

REACTIONS (5)
  - Brain oedema [Not Recovered/Not Resolved]
  - Brain death [Fatal]
  - Inappropriate antidiuretic hormone secretion [Fatal]
  - Epilepsy [Unknown]
  - Coma [Not Recovered/Not Resolved]
